FAERS Safety Report 7687071-4 (Version None)
Quarter: 2011Q3

REPORT INFORMATION
  Report Type: 
  Country: None (occurrence: None)
  Receive Date: 20110816
  Receipt Date: 20110808
  Transmission Date: 20111222
  Serious: Yes (Other)
  Sender: FDA-Public Use
  Company Number: US-US-EMD SERONO, INC.-7076402

PATIENT
  Sex: Female

DRUGS (3)
  1. REBIF [Suspect]
     Indication: MULTIPLE SCLEROSIS
     Route: 058
     Dates: start: 20090127
  2. SANCTURA [Concomitant]
     Indication: POLLAKIURIA
  3. DITROPAN [Concomitant]
     Indication: POLLAKIURIA

REACTIONS (2)
  - NEPHROLITHIASIS [None]
  - URINARY RETENTION [None]
